FAERS Safety Report 6879846-6 (Version None)
Quarter: 2010Q3

REPORT INFORMATION
  Report Type: 
  Country: None (occurrence: None)
  Receive Date: 20100728
  Receipt Date: 20100716
  Transmission Date: 20110219
  Serious: Yes (Life-Threatening, Hospitalization)
  Sender: FDA-Public Use
  Company Number: JP-SANOFI-AVENTIS-2010SA036358

PATIENT
  Age: 35 Year
  Sex: Female

DRUGS (3)
  1. MYSLEE [Suspect]
     Indication: SUICIDE ATTEMPT
     Route: 048
     Dates: start: 20090902, end: 20090902
  2. AMLODIPINE BESYLATE [Suspect]
     Indication: SUICIDE ATTEMPT
     Route: 048
     Dates: start: 20090902, end: 20090902
  3. VOGLIBOSE [Suspect]
     Indication: SUICIDE ATTEMPT
     Route: 048
     Dates: start: 20090902, end: 20090902

REACTIONS (5)
  - COMA SCALE ABNORMAL [None]
  - HYPOTENSION [None]
  - MULTIPLE DRUG OVERDOSE [None]
  - RENAL FAILURE ACUTE [None]
  - RHABDOMYOLYSIS [None]
